FAERS Safety Report 14598344 (Version 1)
Quarter: 2018Q1

REPORT INFORMATION
  Report Type: Spontaneous
  Country: GB (occurrence: US)
  Receive Date: 20180303
  Receipt Date: 20180303
  Transmission Date: 20180509
  Serious: Yes (Other)
  Sender: FDA-Public Use
  Company Number: None

PATIENT
  Age: 45 Year
  Sex: Female
  Weight: 4.08 kg

DRUGS (1)
  1. PARAGARD T 380A [Suspect]
     Active Substance: COPPER
     Indication: CONTRACEPTION
     Route: 005
     Dates: start: 20171013, end: 20180301

REACTIONS (5)
  - Depression [None]
  - Abdominal distension [None]
  - Premenstrual syndrome [None]
  - Insomnia [None]
  - Anxiety [None]

NARRATIVE: CASE EVENT DATE: 20180301
